FAERS Safety Report 4486432-4 (Version None)
Quarter: 2004Q4

REPORT INFORMATION
  Report Type: 
  Country: None (occurrence: None)
  Receive Date: 20041026
  Receipt Date: 20041026
  Transmission Date: 20050328
  Serious: Yes (Hospitalization)
  Sender: FDA-Public Use
  Company Number: None

PATIENT
  Age: 15 Month
  Sex: Female

DRUGS (1)
  1. AMOXICILLIN [Suspect]
     Indication: OTITIS MEDIA
     Dates: start: 20040129, end: 20040205

REACTIONS (3)
  - RASH GENERALISED [None]
  - SKIN DISCOLOURATION [None]
  - SWELLING [None]
